FAERS Safety Report 5105157-5 (Version None)
Quarter: 2006Q3

REPORT INFORMATION
  Report Type: 
  Country: None (occurrence: None)
  Receive Date: 20060914
  Receipt Date: 20050613
  Transmission Date: 20061208
  Serious: Yes (Hospitalization)
  Sender: FDA-Public Use
  Company Number: FR-ABBOTT-05P-056-0303233-00

PATIENT
  Sex: Female
  Weight: 70 kg

DRUGS (14)
  1. HUMIRA [Suspect]
     Indication: RHEUMATOID ARTHRITIS
     Route: 058
     Dates: start: 20040224, end: 20050401
  2. HUMIRA [Suspect]
     Route: 058
     Dates: start: 20050620
  3. TRIAVA [Concomitant]
     Indication: HYPERTENSION
     Dates: start: 19930101
  4. OFLOXACIN [Concomitant]
     Indication: ARTHRITIS BACTERIAL
     Dates: start: 20050331, end: 20050616
  5. RIFAMPICIN [Concomitant]
     Indication: ARTHRITIS BACTERIAL
     Dates: start: 20050331, end: 20050415
  6. PREDNISOLONE SODIUM PHOSPHATE [Concomitant]
     Indication: RHEUMATOID ARTHRITIS
     Dates: start: 19830101
  7. CALCIUM WITH VITAMIN D [Concomitant]
     Indication: DRUG USE FOR UNKNOWN INDICATION
     Dates: start: 19980101
  8. FLECAINIDE ACETATE [Concomitant]
     Indication: ARRHYTHMIA
     Dates: start: 19930101
  9. EUPRESSOR [Concomitant]
     Indication: HYPERTENSION
     Dates: start: 19920101
  10. DEIOXAT [Concomitant]
     Indication: DEPRESSION
     Dates: start: 19990101
  11. RAMIPRIL [Concomitant]
     Indication: HYPERTENSION
     Dates: start: 19930101
  12. CLOXACILLIN SODIUM [Concomitant]
     Indication: ARTHRITIS BACTERIAL
     Dates: start: 20050301, end: 20050301
  13. OXACILLIN [Concomitant]
     Indication: ARTHRITIS BACTERIAL
     Dates: start: 20050415, end: 20050616
  14. HUMIRA [Concomitant]
     Indication: RHEUMATOID ARTHRITIS
     Route: 058
     Dates: start: 20031010

REACTIONS (1)
  - OSTEOARTHRITIS [None]
